FAERS Safety Report 10178681 (Version 1)
Quarter: 2014Q2

REPORT INFORMATION
  Report Type: Spontaneous
  Country: US (occurrence: US)
  Receive Date: 20140519
  Receipt Date: 20140519
  Transmission Date: 20141212
  Serious: Yes (Death)
  Sender: FDA-Public Use
  Company Number: US-TEVA-481720USA

PATIENT
  Age: 12 Year
  Sex: Male

DRUGS (5)
  1. VINCRISTINE [Suspect]
     Indication: ANTIRETROVIRAL THERAPY
     Route: 065
  2. STAVUDINE [Suspect]
     Indication: IMMUNE RECONSTITUTION INFLAMMATORY SYNDROME
     Route: 065
  3. LAMIVUDINE [Concomitant]
     Indication: ANTIRETROVIRAL THERAPY
     Route: 065
  4. EFAVIRENZ [Concomitant]
     Indication: ANTIRETROVIRAL THERAPY
     Route: 065
  5. BLEOMYCIN [Concomitant]
     Indication: IMMUNE RECONSTITUTION INFLAMMATORY SYNDROME
     Route: 065

REACTIONS (2)
  - Respiratory disorder [Fatal]
  - Neuropathy peripheral [Unknown]
